FAERS Safety Report 7422755-4 (Version None)
Quarter: 2011Q2

REPORT INFORMATION
  Report Type: 
  Country: None (occurrence: None)
  Receive Date: 20110414
  Receipt Date: 20110414
  Transmission Date: 20111010
  Serious: Yes (Hospitalization)
  Sender: FDA-Public Use
  Company Number: None

PATIENT
  Sex: Male
  Weight: 58.9676 kg

DRUGS (2)
  1. AMIFOSTINE [Suspect]
     Indication: DRY MOUTH
     Dosage: 500 MG SQ M-F SQ 20 DOSES
     Route: 058
     Dates: start: 20110308
  2. AMIFOSTINE [Suspect]
     Indication: HEAD AND NECK CANCER
     Dosage: 500 MG SQ M-F SQ 20 DOSES
     Route: 058
     Dates: start: 20110308

REACTIONS (3)
  - RASH PRURITIC [None]
  - PYREXIA [None]
  - RASH GENERALISED [None]
